FAERS Safety Report 8887264 (Version 3)
Quarter: 2013Q4

REPORT INFORMATION
  Report Type: Spontaneous
  Country: US (occurrence: US)
  Receive Date: 20121105
  Receipt Date: 20131113
  Transmission Date: 20140711
  Serious: Yes (Other)
  Sender: FDA-Public Use
  Company Number: US-ASTRAZENECA-2012SE79318

PATIENT
  Age: 57 Year
  Sex: Female
  Weight: 72.6 kg

DRUGS (13)
  1. SYMBICORT PMDI [Suspect]
     Indication: CHRONIC OBSTRUCTIVE PULMONARY DISEASE
     Dosage: 160/4.5MG, 2 PUFFS BID
     Route: 055
  2. SYMBICORT PMDI [Suspect]
     Indication: BRONCHITIS CHRONIC
     Dosage: 160/4.5MG, 2 PUFFS BID
     Route: 055
  3. SYMBICORT PMDI [Suspect]
     Indication: ASTHMA
     Dosage: 160/4.5MG, 2 PUFFS BID
     Route: 055
  4. NEXIUM [Suspect]
     Indication: GASTROOESOPHAGEAL REFLUX DISEASE
     Route: 048
  5. NEXIUM [Suspect]
     Indication: GASTROOESOPHAGEAL REFLUX DISEASE
     Route: 048
     Dates: end: 20131104
  6. CRESTOR [Suspect]
     Indication: BLOOD CHOLESTEROL ABNORMAL
     Route: 048
     Dates: start: 2012
  7. QUINIPRIL [Concomitant]
     Indication: BLOOD PRESSURE
     Route: 048
     Dates: start: 2011
  8. GENERIC FOR FLEXARIL [Concomitant]
     Indication: MUSCLE SPASMS
     Route: 048
  9. PREDNISONE [Concomitant]
     Indication: RHEUMATOID ARTHRITIS
     Route: 048
     Dates: start: 201309
  10. AMITRIPTYLINE [Concomitant]
     Indication: NERVE INJURY
     Route: 048
     Dates: start: 2000
  11. METHOTREXATE [Concomitant]
     Indication: RHEUMATOID ARTHRITIS
     Dosage: 2.5MG 4 TABLETS 2XWEEK
     Route: 048
     Dates: start: 201305
  12. GABAPENTIN [Concomitant]
     Indication: NEUROPATHY PERIPHERAL
     Route: 048
     Dates: start: 201309
  13. TEMAZEPAM [Concomitant]
     Indication: SLEEP DISORDER
     Route: 048
     Dates: start: 2011

REACTIONS (12)
  - Carotid artery occlusion [Unknown]
  - Vomiting [Unknown]
  - Amnesia [Unknown]
  - Rheumatoid arthritis [Unknown]
  - Osteoarthritis [Unknown]
  - Intervertebral disc degeneration [Unknown]
  - Chronic obstructive pulmonary disease [Unknown]
  - Malaise [Unknown]
  - Dementia [Unknown]
  - Drug ineffective [Unknown]
  - Drug dose omission [Unknown]
  - Intentional drug misuse [Unknown]
